FAERS Safety Report 12864275 (Version 2)
Quarter: 2018Q3

REPORT INFORMATION
  Report Type: Spontaneous
  Country: US (occurrence: US)
  Receive Date: 20161020
  Receipt Date: 20180720
  Transmission Date: 20181010
  Serious: Yes (Hospitalization)
  Sender: FDA-Public Use
  Company Number: US-TEVA-671036USA

PATIENT
  Age: 62 Year
  Sex: Female
  Weight: 101.2 kg

DRUGS (13)
  1. INFLIXIMAB [Concomitant]
     Active Substance: INFLIXIMAB
     Dosage: REGIMEN #3
     Route: 042
     Dates: start: 20150904, end: 20150904
  2. PREDNISONE. [Concomitant]
     Active Substance: PREDNISONE
     Dates: start: 20150510
  3. FOLIC ACID. [Concomitant]
     Active Substance: FOLIC ACID
     Dates: start: 20140724
  4. METHOTREXATE. [Suspect]
     Active Substance: METHOTREXATE
     Dosage: 2.8571 MILLIGRAM DAILY;
     Route: 048
     Dates: start: 20150328
  5. CELEXA [Concomitant]
     Active Substance: CITALOPRAM HYDROBROMIDE
     Dates: start: 2000
  6. INFLIXIMAB [Concomitant]
     Active Substance: INFLIXIMAB
     Dosage: REGIMEN #4
     Route: 042
     Dates: start: 20151221, end: 20151221
  7. LISINOPRIL. [Concomitant]
     Active Substance: LISINOPRIL
     Dates: start: 20051207, end: 20151214
  8. MELOXICAM. [Concomitant]
     Active Substance: MELOXICAM
     Dates: start: 20150522
  9. INFLIXIMAB [Concomitant]
     Active Substance: INFLIXIMAB
     Indication: RHEUMATOID ARTHRITIS
     Route: 042
     Dates: start: 20150722, end: 20150722
  10. INFLIXIMAB [Concomitant]
     Active Substance: INFLIXIMAB
     Dosage: REGIMEN #2
     Route: 042
     Dates: start: 20150804, end: 20150804
  11. INFLIXIMAB [Concomitant]
     Active Substance: INFLIXIMAB
     Dosage: REGIMEN #4
     Route: 042
     Dates: start: 20151029, end: 20151029
  12. TRAMADOL. [Concomitant]
     Active Substance: TRAMADOL
     Dates: start: 20150522
  13. OMEPRAZOLE. [Concomitant]
     Active Substance: OMEPRAZOLE
     Dates: start: 1996

REACTIONS (1)
  - Bronchitis [Recovered/Resolved]

NARRATIVE: CASE EVENT DATE: 20160309
